FAERS Safety Report 19220001 (Version 1)
Quarter: 2021Q2

REPORT INFORMATION
  Report Type: Spontaneous
  Country: US (occurrence: US)
  Receive Date: 20210505
  Receipt Date: 20210505
  Transmission Date: 20210717
  Serious: Yes (Other)
  Sender: FDA-Public Use
  Company Number: US-ENDO PHARMACEUTICALS INC-2021-002259

PATIENT
  Age: 63 Year
  Sex: Female

DRUGS (2)
  1. RANITIDINE HYDROCHLORIDE. [Suspect]
     Active Substance: RANITIDINE HYDROCHLORIDE
     Indication: ULCER HAEMORRHAGE
     Dosage: 300 MG, DAILY
     Route: 065
     Dates: start: 200705, end: 201909
  2. RANITIDINE. [Suspect]
     Active Substance: RANITIDINE
     Indication: ULCER HAEMORRHAGE
     Dosage: 300 MG, DAILY
     Route: 065
     Dates: start: 200705, end: 201909

REACTIONS (1)
  - Bladder cancer [Recovering/Resolving]

NARRATIVE: CASE EVENT DATE: 20200730
